FAERS Safety Report 8863104 (Version 1)
Quarter: 2012Q4

REPORT INFORMATION
  Report Type: 
  Country: US (occurrence: US)
  Receive Date: 20121026
  Receipt Date: 20121026
  Transmission Date: 20130627
  Serious: Yes (Hospitalization, Disabling, Other)
  Sender: FDA-Public Use
  Company Number: US-009507513-0705USA01446

PATIENT

DRUGS (6)
  1. FOSAMAX [Suspect]
     Indication: WRIST FRACTURE
     Dosage: 70 mg, QW
     Route: 048
     Dates: start: 200309, end: 200510
  2. FOSAMAX [Suspect]
     Indication: OSTEOPOROSIS
  3. THEOPHYLLINE [Concomitant]
  4. METICORTEN [Suspect]
     Indication: ASTHMA
     Dates: start: 1977
  5. SINGULAIR [Concomitant]
  6. ALBUTEROL [Concomitant]

REACTIONS (37)
  - Osteonecrosis of jaw [Recovering/Resolving]
  - Bronchitis [Unknown]
  - Herpes zoster [Recovered/Resolved]
  - Osteomyelitis [Recovering/Resolving]
  - Leukocytosis [Unknown]
  - Faeces discoloured [Recovering/Resolving]
  - Muscular weakness [Recovering/Resolving]
  - Asthma [Unknown]
  - Bronchitis [Unknown]
  - Exostosis [Recovering/Resolving]
  - Myalgia [Unknown]
  - Upper respiratory tract infection [Recovered/Resolved]
  - Cellulitis [Recovering/Resolving]
  - Pneumonia pneumococcal [Unknown]
  - Streptococcal bacteraemia [Unknown]
  - Sepsis [Unknown]
  - Hypotension [Unknown]
  - Tachycardia [Unknown]
  - Temporal arteritis [Unknown]
  - Chronic obstructive pulmonary disease [Unknown]
  - Azotaemia [Unknown]
  - Dehydration [Unknown]
  - Insomnia [Unknown]
  - Tooth abscess [Recovering/Resolving]
  - Monoclonal gammopathy [Unknown]
  - Type 1 diabetes mellitus [Unknown]
  - Asthma [Recovering/Resolving]
  - Supraventricular tachycardia [Recovering/Resolving]
  - Compression fracture [Unknown]
  - Urinary tract infection [Unknown]
  - Tooth abscess [Unknown]
  - Serositis [Unknown]
  - Diverticular perforation [Unknown]
  - Neck pain [Unknown]
  - Pathological fracture [Unknown]
  - Injury [Unknown]
  - Temporal arteritis [Unknown]
